FAERS Safety Report 5175207-9 (Version None)
Quarter: 2006Q4

REPORT INFORMATION
  Report Type: 
  Country: None (occurrence: None)
  Receive Date: 20061206
  Receipt Date: 20061121
  Transmission Date: 20070319
  Serious: Yes (Other)
  Sender: FDA-Public Use
  Company Number: 2006BL006551

PATIENT
  Age: 42 Year
  Sex: Male

DRUGS (15)
  1. VITRASERT [Suspect]
     Indication: ANTIVIRAL PROPHYLAXIS
     Dosage: 1 GRAMS; 3 TIMES A DAY; ORAL
     Route: 048
  2. GANCICLOVIR SODIUM [Suspect]
     Indication: CYTOMEGALOVIRUS INFECTION
     Dosage: 10 MILLIGRAMS; INTRAVENOUS
     Route: 042
  3. VALGANCICLOVIR HYDROCHLORIDE (VALGANCICLOVIR HYDROCHLORIDE) [Suspect]
     Indication: CYTOMEGALOVIRUS INFECTION
     Dosage: 15 MILLIGRAMS; ONCE A DAY
  4. ACYCLOVIR [Concomitant]
  5. ALENDRONATE SODIUM [Concomitant]
  6. AZATHIOPRINE [Concomitant]
  7. COTRIM D.S. [Concomitant]
  8. DIHYDROCODEINE BITARTRATE INJ [Concomitant]
  9. FOSCARNET SODIUM [Concomitant]
  10. LANSOPRAZOLE [Concomitant]
  11. ONDANSETRON HCL [Concomitant]
  12. PREDNISOLONE [Concomitant]
  13. TACROLIMUS [Concomitant]
  14. TAMSULOSIN HCL [Concomitant]
  15. ZOPICLONE [Concomitant]

REACTIONS (4)
  - CYTOMEGALOVIRUS INFECTION [None]
  - DYSPLASIA [None]
  - NEUTROPHIL MORPHOLOGY ABNORMAL [None]
  - WHITE BLOOD CELL COUNT DECREASED [None]
